FAERS Safety Report 26125305 (Version 1)
Quarter: 2025Q4

REPORT INFORMATION
  Report Type: Other
  Country: EU (occurrence: EU)
  Receive Date: 20251205
  Receipt Date: 20251205
  Transmission Date: 20260117
  Serious: Yes (Death, Hospitalization)
  Sender: ANI
  Company Number: EU-ANIPHARMA-035469

PATIENT
  Age: 15 Year
  Sex: Female

DRUGS (7)
  1. LEUCOVORIN [Suspect]
     Active Substance: LEUCOVORIN\LEUCOVORIN CALCIUM
     Indication: Colorectal adenocarcinoma
     Dosage: FIRST LINE FOLFOX CHEMOTHERAPY REGIMENS (8 CYCLES)
  2. FLUOROURACIL [Concomitant]
     Active Substance: FLUOROURACIL
     Indication: Colorectal adenocarcinoma
     Dosage: FIRST LINE FOLFOX CHEMOTHERAPY REGIMENS (8 CYCLES)
  3. OXALIPLATIN [Concomitant]
     Active Substance: OXALIPLATIN
     Indication: Colorectal adenocarcinoma
     Dosage: FIRST LINE FOLFOX CHEMOTHERAPY REGIMENS (8 CYCLES)
  4. BEVACIZUMAB [Concomitant]
     Active Substance: BEVACIZUMAB
     Indication: Colorectal adenocarcinoma
     Dosage: SECOND LINE CHEMOTHERAPY
  5. OXALIPLATIN [Concomitant]
     Active Substance: OXALIPLATIN
     Indication: Colorectal adenocarcinoma
     Dosage: SECOND LINE FOLFOX CHEMOTHERAPY
  6. FLUOROURACIL [Concomitant]
     Active Substance: FLUOROURACIL
     Indication: Colorectal adenocarcinoma
     Dosage: SECOND LINE FOLFOX CHEMOTHERAPY
  7. LEUCOVORIN [Suspect]
     Active Substance: LEUCOVORIN\LEUCOVORIN CALCIUM
     Indication: Colorectal adenocarcinoma
     Dosage: SECOND LINE FOLFOX CHEMOTHERAPY

REACTIONS (1)
  - Disease recurrence [Fatal]
